FAERS Safety Report 9134666 (Version 1)
Quarter: 2013Q1

REPORT INFORMATION
  Report Type: Spontaneous
  Country: US (occurrence: US)
  Receive Date: 20130304
  Receipt Date: 20130304
  Transmission Date: 20140127
  Serious: No
  Sender: FDA-Public Use
  Company Number: US-PFIZER INC-2013073887

PATIENT
  Age: 63 Year
  Sex: Female
  Weight: 134 kg

DRUGS (5)
  1. LYRICA [Suspect]
     Indication: NEURALGIA
     Dosage: 75 MG, 2X/DAY
     Route: 048
     Dates: start: 20130123, end: 20130202
  2. ATACAND [Concomitant]
     Indication: HYPERTENSION
     Dosage: 16 MG, 1X/DAY
     Route: 048
  3. HYDROCHLOROTHIAZIDE [Concomitant]
     Indication: HYPERTENSION
     Dosage: 50 MG, 1X/DAY
     Route: 048
  4. LASIX [Concomitant]
     Indication: FLUID RETENTION
     Dosage: 40 MG, AS NEEDED
     Route: 048
  5. POTASSIUM [Concomitant]
     Indication: FLUID RETENTION
     Dosage: 10 MG, AS NEEDED
     Route: 048

REACTIONS (2)
  - Vision blurred [Recovering/Resolving]
  - Headache [Not Recovered/Not Resolved]
